FAERS Safety Report 8068165-0 (Version None)
Quarter: 2012Q1

REPORT INFORMATION
  Report Type: 
  Country: None (occurrence: None)
  Receive Date: 20120124
  Receipt Date: 20110831
  Transmission Date: 20120608
  Serious: No
  Sender: FDA-Public Use
  Company Number: US-AMGEN-USASP2011044714

PATIENT
  Sex: Female

DRUGS (5)
  1. ALLOPURINOL [Concomitant]
     Dosage: UNK
  2. VITAMIN TAB [Concomitant]
     Dosage: UNK
  3. PROLIA [Suspect]
     Indication: OSTEOPOROSIS POSTMENOPAUSAL
     Dosage: 60 MG, UNK
     Dates: start: 20110601, end: 20110101
  4. VITAMIN D [Concomitant]
     Dosage: UNK
  5. CALCIUM [Concomitant]
     Dosage: UNK

REACTIONS (4)
  - FATIGUE [None]
  - ASTHENIA [None]
  - HEADACHE [None]
  - HERPES ZOSTER [None]
